FAERS Safety Report 18810501 (Version 2)
Quarter: 2022Q2

REPORT INFORMATION
  Report Type: Spontaneous
  Country: US (occurrence: US)
  Receive Date: 20210129
  Receipt Date: 20220504
  Transmission Date: 20220721
  Serious: No
  Sender: FDA-Public Use
  Company Number: US-PFIZER INC-2021066222

PATIENT
  Age: 72 Year
  Sex: Male

DRUGS (1)
  1. EMCYT [Suspect]
     Active Substance: ESTRAMUSTINE PHOSPHATE SODIUM
     Dosage: 140 MG, CYCLIC (DIRECTIONS SIG: TWO ORAL TID (THREE TIMES A DAY) FOR 21 DAYS ON, 7 DAYS OFF)
     Route: 048

REACTIONS (1)
  - Malaise [Unknown]
